FAERS Safety Report 25573343 (Version 3)
Quarter: 2025Q3

REPORT INFORMATION
  Report Type: Spontaneous
  Country: US (occurrence: US)
  Receive Date: 20250717
  Receipt Date: 20250821
  Transmission Date: 20251021
  Serious: No
  Sender: PFIZER
  Company Number: US-PFIZER INC-202500142569

PATIENT
  Age: 46 Year
  Sex: Male

DRUGS (1)
  1. BICILLIN L-A [Suspect]
     Active Substance: PENICILLIN G BENZATHINE
     Indication: Syphilis
     Dosage: 4 ML, EVERY 3 WEEKS
     Dates: start: 202505, end: 202506

REACTIONS (2)
  - Recalled product administered [Unknown]
  - Off label use [Unknown]
